FAERS Safety Report 23419092 (Version 1)
Quarter: 2024Q1

REPORT INFORMATION
  Report Type: Spontaneous
  Country: IT (occurrence: IT)
  Receive Date: 20240118
  Receipt Date: 20240118
  Transmission Date: 20240410
  Serious: Yes (Other)
  Sender: FDA-Public Use
  Company Number: IT-MYLANLABS-2024M1001711

PATIENT
  Age: 59 Year
  Sex: Female

DRUGS (3)
  1. XANAX XR [Suspect]
     Active Substance: ALPRAZOLAM
     Indication: Attention deficit hyperactivity disorder
     Dosage: 0.48 MILLIGRAM
     Route: 048
     Dates: start: 2018
  2. XANAX XR [Suspect]
     Active Substance: ALPRAZOLAM
     Indication: Depression
     Dosage: 0.46 MILLIGRAM (SCALED DOWN BY 0.02 EVERY FORTNIGHT)
     Route: 048
     Dates: start: 201906
  3. STRATTERA [Concomitant]
     Active Substance: ATOMOXETINE HYDROCHLORIDE
     Indication: Attention deficit hyperactivity disorder
     Dosage: UNK
     Route: 065

REACTIONS (7)
  - Drug dependence [Unknown]
  - Nervousness [Unknown]
  - Withdrawal syndrome [Unknown]
  - Negative thoughts [Unknown]
  - No adverse event [Unknown]
  - Wrong technique in product usage process [Unknown]
  - Off label use [Unknown]
